FAERS Safety Report 14307064 (Version 1)
Quarter: 2017Q4

REPORT INFORMATION
  Report Type: Spontaneous
  Country: US (occurrence: US)
  Receive Date: 20171220
  Receipt Date: 20171220
  Transmission Date: 20180321
  Serious: No
  Sender: FDA-Public Use
  Company Number: US-009507513-1712USA002638

PATIENT
  Age: 26 Year
  Sex: Female

DRUGS (6)
  1. FLUCONAZOLE. [Concomitant]
     Active Substance: FLUCONAZOLE
     Indication: CRYPTOCOCCOSIS
     Dosage: UNK
     Route: 048
  2. INVANZ [Suspect]
     Active Substance: ERTAPENEM SODIUM
     Indication: SUPERINFECTION FUNGAL
  3. INVANZ [Suspect]
     Active Substance: ERTAPENEM SODIUM
     Indication: MEDIASTINITIS
  4. INVANZ [Suspect]
     Active Substance: ERTAPENEM SODIUM
     Indication: CRYPTOCOCCOSIS
     Dosage: UNK
     Route: 051
  5. FLUCONAZOLE. [Concomitant]
     Active Substance: FLUCONAZOLE
     Indication: SUPERINFECTION FUNGAL
  6. FLUCONAZOLE. [Concomitant]
     Active Substance: FLUCONAZOLE
     Indication: MEDIASTINITIS

REACTIONS (1)
  - Product use in unapproved indication [Unknown]
